FAERS Safety Report 6746491-2 (Version None)
Quarter: 2010Q2

REPORT INFORMATION
  Report Type: 
  Country: None (occurrence: None)
  Receive Date: 20100528
  Receipt Date: 20100115
  Transmission Date: 20101027
  Serious: No
  Sender: FDA-Public Use
  Company Number: US-ASTRAZENECA-2010SE02739

PATIENT
  Sex: Female

DRUGS (3)
  1. PRILOSEC OTC [Suspect]
     Indication: GASTROOESOPHAGEAL REFLUX DISEASE
     Route: 050
     Dates: start: 20091201
  2. KLONOPIN [Concomitant]
     Dosage: UNKNOWN
  3. EFFEXOR [Concomitant]
     Dosage: UNKNOWN

REACTIONS (2)
  - HYPOAESTHESIA [None]
  - HYPOAESTHESIA ORAL [None]
